FAERS Safety Report 7533306-8 (Version None)
Quarter: 2011Q2

REPORT INFORMATION
  Report Type: 
  Country: None (occurrence: None)
  Receive Date: 20110608
  Receipt Date: 20051010
  Transmission Date: 20111010
  Serious: Yes (Death)
  Sender: FDA-Public Use
  Company Number: PHEH2005US11187

PATIENT
  Sex: Male

DRUGS (10)
  1. REMINYL /USA/ [Concomitant]
     Dosage: 8 MG, UNK
  2. CLOZAPINE [Suspect]
     Dosage: 25 MG, QD
     Route: 048
  3. REQUIP [Concomitant]
     Dosage: 0.5 MG, UNK
  4. NAPROXEN [Concomitant]
     Dosage: 500 MG, UNK
  5. NAMENDA [Concomitant]
     Dosage: 5 MG, UNK
  6. LASIX [Concomitant]
  7. CARBIDOPA + LEVODOPA [Concomitant]
     Dosage: 50MG/200MG, UNK
  8. COMTAN [Concomitant]
     Dosage: 200 MG, UNK
  9. PLETAL [Concomitant]
     Dosage: 50 MG, UNK
  10. POTASSIUM CHLORIDE [Concomitant]
     Dosage: 20 MEQ, UNK

REACTIONS (1)
  - DEATH [None]
